FAERS Safety Report 20693354 (Version 1)
Quarter: 2022Q2

REPORT INFORMATION
  Report Type: Spontaneous
  Country: CN (occurrence: None)
  Receive Date: 20220410
  Receipt Date: 20220410
  Transmission Date: 20220721
  Serious: Yes (Other)
  Sender: FDA-Public Use
  Company Number: CN-ROCHE-3071726

PATIENT
  Age: 50 Year
  Sex: Female

DRUGS (4)
  1. AVASTIN [Suspect]
     Active Substance: BEVACIZUMAB
     Indication: Adenocarcinoma of colon
     Dosage: XELIRI REGIMEN COMBINED WITH BEVACIZUMAB
     Route: 065
     Dates: start: 20201014
  2. XELODA [Suspect]
     Active Substance: CAPECITABINE
     Indication: Adenocarcinoma of colon
     Dosage: XELIRI REGIMEN COMBINED WITH BEVACIZUMAB
     Route: 048
     Dates: start: 20201014
  3. OXALIPLATIN [Concomitant]
     Active Substance: OXALIPLATIN
     Indication: Adenocarcinoma of colon
     Route: 065
  4. IRINOTECAN [Concomitant]
     Active Substance: IRINOTECAN
     Indication: Adenocarcinoma of colon
     Dosage: XELIRI REGIMEN COMBINED WITH BEVACIZUMAB
     Route: 065
     Dates: start: 20201014

REACTIONS (1)
  - Platelet count decreased [Unknown]
